FAERS Safety Report 9437546 (Version 4)
Quarter: 2013Q3

REPORT INFORMATION
  Report Type: Report from Study
  Country: PT (occurrence: PT)
  Receive Date: 20130802
  Receipt Date: 20130913
  Transmission Date: 20140515
  Serious: Yes (Life-Threatening, Hospitalization)
  Sender: FDA-Public Use
  Company Number: PT-CELGENEUS-130-C4047-13073155

PATIENT
  Age: 52 Year
  Sex: Male
  Weight: 45 kg

DRUGS (21)
  1. CC-4047 [Suspect]
     Indication: PLASMA CELL MYELOMA
     Dosage: 4 MILLIGRAM
     Route: 048
     Dates: start: 20130426, end: 20130503
  2. CC-4047 [Suspect]
     Dosage: 4 MILLIGRAM
     Route: 048
     Dates: start: 20130718, end: 20130720
  3. CC-4047 [Suspect]
     Dosage: 3 MILLIGRAM
     Route: 048
     Dates: start: 20130814, end: 20130902
  4. DEXAMETHASONE [Suspect]
     Indication: PLASMA CELL MYELOMA
     Dosage: 40 MILLIGRAM
     Route: 065
     Dates: start: 20130426, end: 20130503
  5. DEXAMETHASONE [Suspect]
     Route: 065
     Dates: start: 20130718, end: 20130720
  6. DEXAMETHASONE [Suspect]
     Dosage: 40 MILLIGRAM
     Route: 065
     Dates: start: 20130814, end: 20130902
  7. FENTANYL [Concomitant]
     Indication: PAIN
     Route: 062
     Dates: start: 20130523
  8. ESOMEPRAZOLE [Concomitant]
     Indication: PROPHYLAXIS
     Route: 048
  9. SUCRAFATE [Concomitant]
     Indication: PROPHYLAXIS
     Route: 048
     Dates: start: 20130415
  10. ASPIRINE [Concomitant]
     Indication: THROMBOSIS PROPHYLAXIS
     Dosage: 100 MILLIGRAM
     Route: 048
     Dates: start: 20130426
  11. DICLOFENAC [Concomitant]
     Indication: PAIN
     Route: 065
     Dates: start: 20130410
  12. LACTULOSE [Concomitant]
     Indication: CONSTIPATION
     Route: 065
     Dates: start: 20130509
  13. MAGNESIUM [Concomitant]
     Indication: PROPHYLAXIS
     Route: 065
     Dates: start: 20130426
  14. MYCOSTATIN [Concomitant]
     Indication: PROPHYLAXIS
     Route: 065
     Dates: start: 20130426
  15. METOCLOPRAMIDE [Concomitant]
     Indication: PROPHYLAXIS OF NAUSEA AND VOMITING
     Route: 065
     Dates: start: 20130509
  16. OMEPRAZOLE [Concomitant]
     Indication: PROPHYLAXIS
     Route: 065
     Dates: start: 20130426
  17. CENTRUM [Concomitant]
     Indication: VITAMIN SUPPLEMENTATION
     Route: 065
     Dates: start: 20130509
  18. CASPOFUNGIN [Concomitant]
     Indication: PNEUMONIA
     Route: 065
     Dates: start: 20130604, end: 20130620
  19. CASPOFUNGIN [Concomitant]
     Indication: INFECTION
     Dosage: 50 MILLIGRAM
     Route: 041
     Dates: start: 20130722, end: 20130726
  20. TRIMETHOPRIM + SULFAMETHOXAZOLE [Concomitant]
     Indication: PNEUMONIA
     Dosage: 960MG (160+800)
     Route: 065
     Dates: start: 20130604, end: 20130626
  21. PURSENNID [Concomitant]
     Indication: CONSTIPATION
     Route: 065
     Dates: start: 20130509

REACTIONS (2)
  - Septic shock [Recovered/Resolved]
  - Pneumothorax [Recovered/Resolved]
